FAERS Safety Report 5215041-4 (Version None)
Quarter: 2007Q1

REPORT INFORMATION
  Report Type: 
  Country: None (occurrence: None)
  Receive Date: 20070122
  Receipt Date: 20070110
  Transmission Date: 20070707
  Serious: Yes (Other)
  Sender: FDA-Public Use
  Company Number: KR-PFIZER INC-2006153257

PATIENT
  Sex: Male
  Weight: 71 kg

DRUGS (6)
  1. LINEZOLID TABLET [Suspect]
     Indication: MULTIPLE-DRUG RESISTANCE
     Route: 048
     Dates: start: 20050607, end: 20051105
  2. CYCLOSERINE [Concomitant]
     Route: 048
     Dates: start: 20050607, end: 20061124
  3. PROTHIONAMIDE [Concomitant]
     Route: 048
     Dates: start: 20050607, end: 20061124
  4. CLARITHROMYCIN [Concomitant]
     Route: 048
     Dates: start: 20050607, end: 20061124
  5. AMOXICILLIN + CLAVULANATE POTASSIUM [Concomitant]
     Route: 048
     Dates: start: 20050607, end: 20061124
  6. AVELOX [Concomitant]
     Dosage: DAILY DOSE:600MG
     Route: 048
     Dates: start: 20050607, end: 20061124

REACTIONS (1)
  - NEUROPATHY [None]
